FAERS Safety Report 7006596-8 (Version None)
Quarter: 2010Q3

REPORT INFORMATION
  Report Type: 
  Country: None (occurrence: None)
  Receive Date: 20100921
  Receipt Date: 20100921
  Transmission Date: 20110219
  Serious: Yes (Life-Threatening)
  Sender: FDA-Public Use
  Company Number: None

PATIENT
  Sex: Female
  Weight: 55.9 kg

DRUGS (1)
  1. NEUPOGEN [Suspect]

REACTIONS (2)
  - THERAPEUTIC RESPONSE UNEXPECTED [None]
  - WHITE BLOOD CELL COUNT INCREASED [None]
